FAERS Safety Report 13089622 (Version 1)
Quarter: 2017Q1

REPORT INFORMATION
  Report Type: Spontaneous
  Country: GB (occurrence: GB)
  Receive Date: 20170105
  Receipt Date: 20170105
  Transmission Date: 20170428
  Serious: Yes (Other)
  Sender: FDA-Public Use
  Company Number: GB-BAYER-2016-245841

PATIENT
  Age: 40 Year
  Sex: Female

DRUGS (4)
  1. FRAGMIN [Suspect]
     Active Substance: DALTEPARIN SODIUM
     Indication: PREGNANCY
     Dosage: UNK
  2. PROGESTERONE. [Suspect]
     Active Substance: PROGESTERONE
     Indication: PREGNANCY
     Dosage: UNK
     Route: 065
  3. ASPIRIN. [Suspect]
     Active Substance: ASPIRIN
     Indication: PREGNANCY
     Dosage: UNK
  4. HUMIRA [Suspect]
     Active Substance: ADALIMUMAB
     Indication: PREGNANCY
     Dosage: UNK
     Route: 058

REACTIONS (9)
  - Abortion spontaneous [Unknown]
  - Off label use [Unknown]
  - Fallopian tube disorder [Unknown]
  - Foetal death [Unknown]
  - Haemorrhage in pregnancy [Recovered/Resolved]
  - Prolonged labour [Unknown]
  - Surgical failure [Unknown]
  - Vomiting in pregnancy [Unknown]
  - Exposure during pregnancy [Unknown]

NARRATIVE: CASE EVENT DATE: 2016
